FAERS Safety Report 21383506 (Version 1)
Quarter: 2022Q3

REPORT INFORMATION
  Report Type: Spontaneous
  Country: DE (occurrence: DE)
  Receive Date: 20220927
  Receipt Date: 20220927
  Transmission Date: 20221026
  Serious: Yes (Hospitalization, Other)
  Sender: FDA-Public Use
  Company Number: DE-ANIPHARMA-2022-DE-000139

PATIENT
  Age: 70 Year
  Sex: Male

DRUGS (9)
  1. ATACAND [Suspect]
     Active Substance: CANDESARTAN CILEXETIL
     Indication: Product used for unknown indication
     Dosage: 8 MG DAILY
     Route: 048
  2. ASPIRIN [Suspect]
     Active Substance: ASPIRIN
     Dosage: 100 MG DAILY
     Route: 048
  3. ATORVASTATIN CALCIUM [Concomitant]
     Active Substance: ATORVASTATIN CALCIUM
     Dosage: 80 MG UNK
     Route: 048
  4. BISOPROLOL FUMARATE [Concomitant]
     Active Substance: BISOPROLOL FUMARATE
     Dosage: 1.25 MG DAILY
     Route: 048
  5. PANTOPRAZOLE [Concomitant]
     Active Substance: PANTOPRAZOLE
     Dosage: 40 MG DAILY
     Route: 048
  6. CLOPIDOGREL [Suspect]
     Active Substance: CLOPIDOGREL BISULFATE
     Dosage: 75 MG DAILY
     Route: 048
  7. JANUVIA [Suspect]
     Active Substance: SITAGLIPTIN PHOSPHATE
     Dosage: 50 MG DAILY
     Route: 048
  8. METFORMIN [Suspect]
     Active Substance: METFORMIN HYDROCHLORIDE
     Route: 048
  9. TORSEMIDE [Suspect]
     Active Substance: TORSEMIDE
     Dosage: 10 MG DAILY
     Route: 048

REACTIONS (6)
  - Dyspepsia [Unknown]
  - Melaena [Unknown]
  - Abdominal pain lower [Unknown]
  - Upper gastrointestinal haemorrhage [Unknown]
  - Haematochezia [Unknown]
  - Dizziness [Unknown]
